FAERS Safety Report 8869365 (Version 1)
Quarter: 2012Q4

REPORT INFORMATION
  Report Type: Spontaneous
  Country: FR (occurrence: None)
  Receive Date: 20121024
  Receipt Date: 20121024
  Transmission Date: 20130627
  Serious: Yes (Life-Threatening, Hospitalization, Other)
  Sender: FDA-Public Use
  Company Number: 2012000226

PATIENT
  Age: 69 Year
  Sex: Female

DRUGS (7)
  1. ACEON [Suspect]
     Route: 048
     Dates: end: 201208
  2. FLUDEX (INDAPAMIDE) [Concomitant]
     Route: 048
     Dates: end: 201208
  3. GLUCOPHAGE (METFORMIN HYDROCHLORIDE) [Concomitant]
     Route: 048
     Dates: end: 2012
  4. GLUCOPHAGE (METFORMIN HYDROCHLORIDE) [Concomitant]
     Dates: start: 20120712, end: 201208
  5. PARIET (RABEPRAZOLE SODIUM) [Concomitant]
  6. TAHOR (ATORVASTATIN CALCIUM) [Concomitant]
  7. PLAVIX (CLOPIDOGREL) [Concomitant]

REACTIONS (13)
  - Metabolic acidosis [None]
  - Drug interaction [None]
  - Renal failure [None]
  - General physical health deterioration [None]
  - Ulcer [None]
  - Overdose [None]
  - Dehydration [None]
  - Abdominal pain [None]
  - Constipation [None]
  - Diarrhoea [None]
  - Faecal vomiting [None]
  - Decreased appetite [None]
  - Haemodialysis [None]
